FAERS Safety Report 19307157 (Version 3)
Quarter: 2021Q3

REPORT INFORMATION
  Report Type: Spontaneous
  Country: US (occurrence: US)
  Receive Date: 20210526
  Receipt Date: 20210924
  Transmission Date: 20211014
  Serious: Yes (Death, Hospitalization)
  Sender: FDA-Public Use
  Company Number: US-PFIZER INC-2021557024

PATIENT
  Age: 74 Year
  Sex: Male

DRUGS (3)
  1. INLYTA [Suspect]
     Active Substance: AXITINIB
     Dosage: 1 UNK
     Dates: start: 20210519
  2. INLYTA [Suspect]
     Active Substance: AXITINIB
     Dosage: 3 MG, 2X/DAY
     Dates: start: 202105, end: 20210527
  3. INLYTA [Suspect]
     Active Substance: AXITINIB
     Dosage: 5 MG, 2X/DAY
     Dates: start: 202105, end: 202105

REACTIONS (6)
  - Walking aid user [Unknown]
  - Death [Fatal]
  - Decreased appetite [Unknown]
  - Asthenia [Unknown]
  - Balance disorder [Unknown]
  - Fatigue [Unknown]

NARRATIVE: CASE EVENT DATE: 202105
